FAERS Safety Report 4762650-2 (Version None)
Quarter: 2005Q3

REPORT INFORMATION
  Report Type: 
  Country: None (occurrence: None)
  Receive Date: 20050907
  Receipt Date: 20050811
  Transmission Date: 20060218
  Serious: Yes (Hospitalization)
  Sender: FDA-Public Use
  Company Number: PHRM2005FR02274

PATIENT
  Age: 38 Year
  Sex: Male

DRUGS (4)
  1. TEGRETOL [Suspect]
     Indication: NEUROPATHIC PAIN
     Dosage: 600 MG/DAY
     Route: 048
     Dates: start: 20050531, end: 20050617
  2. KALETRA [Suspect]
     Indication: HIV INFECTION
     Dosage: 2 DF, BID
     Route: 048
     Dates: start: 20050531, end: 20050617
  3. VIREAD [Suspect]
     Indication: HIV INFECTION
     Dosage: 1 DF, QD
     Route: 048
     Dates: start: 20050531, end: 20050617
  4. EMTRIVA [Suspect]
     Indication: HIV INFECTION
     Dosage: 1 DF, QD
     Route: 048
     Dates: start: 20050531, end: 20050617

REACTIONS (27)
  - ABDOMINAL PAIN UPPER [None]
  - ABDOMINAL RIGIDITY [None]
  - ACTIVATED PARTIAL THROMBOPLASTIN TIME PROLONGED [None]
  - ALANINE AMINOTRANSFERASE INCREASED [None]
  - ALPHA 1 GLOBULIN INCREASED [None]
  - ANOREXIA [None]
  - BACTERIAL INFECTION [None]
  - BLOOD ALBUMIN DECREASED [None]
  - BLOOD AMYLASE INCREASED [None]
  - C-REACTIVE PROTEIN INCREASED [None]
  - CYTOLYTIC HEPATITIS [None]
  - DIARRHOEA [None]
  - ENTERITIS [None]
  - HYPOCALCAEMIA [None]
  - HYPONATRAEMIA [None]
  - ILEUS PARALYTIC [None]
  - LEUKOPLAKIA ORAL [None]
  - LIPASE INCREASED [None]
  - LYMPHADENOPATHY [None]
  - PHARYNGEAL ERYTHEMA [None]
  - PURPURA [None]
  - PYREXIA [None]
  - RASH MACULAR [None]
  - THERAPEUTIC ASPIRATION [None]
  - THROMBOCYTOPENIA [None]
  - VASCULITIS [None]
  - VOMITING [None]
